FAERS Safety Report 9144406 (Version 1)
Quarter: 2013Q1

REPORT INFORMATION
  Report Type: Spontaneous
  Country: US (occurrence: US)
  Receive Date: 20130306
  Receipt Date: 20130306
  Transmission Date: 20140127
  Serious: Yes (Other)
  Sender: FDA-Public Use
  Company Number: US-PFIZER INC-2013075916

PATIENT
  Age: 39 Year
  Sex: Female

DRUGS (6)
  1. HYDROXYZINE PAMOATE [Suspect]
     Dosage: UNK
  2. OXYCODONE HYDROCHLORIDE [Suspect]
     Dosage: UNK
  3. FEXOFENADINE HYDROCHLORIDE [Suspect]
     Dosage: UNK
  4. OXYCONTIN [Suspect]
     Dosage: UNK
  5. UNISOM [Suspect]
     Dosage: UNK
  6. NASONEX [Suspect]
     Dosage: UNK

REACTIONS (4)
  - Off label use [Unknown]
  - Abortion spontaneous [Unknown]
  - Uterine haemorrhage [Unknown]
  - Uterine spasm [Unknown]
